FAERS Safety Report 6010579-4 (Version None)
Quarter: 2008Q4

REPORT INFORMATION
  Report Type: 
  Country: None (occurrence: None)
  Receive Date: 20081218
  Receipt Date: 20081203
  Transmission Date: 20090506
  Serious: Yes (Hospitalization)
  Sender: FDA-Public Use
  Company Number: US-BIOGENIDEC-2008BI009357

PATIENT
  Age: 55 Year
  Sex: Female

DRUGS (1)
  1. TYSABRI [Suspect]
     Indication: MULTIPLE SCLEROSIS
     Route: 042
     Dates: start: 20070302, end: 20081024

REACTIONS (6)
  - CATHETER RELATED COMPLICATION [None]
  - FUNGAL INFECTION [None]
  - LUNG DISORDER [None]
  - RESPIRATORY TRACT INFECTION [None]
  - SEPSIS [None]
  - URINARY TRACT INFECTION [None]
